FAERS Safety Report 16885118 (Version 1)
Quarter: 2019Q4

REPORT INFORMATION
  Report Type: Spontaneous
  Country: US (occurrence: US)
  Receive Date: 20190808
  Receipt Date: 20190808
  Transmission Date: 20200122
  Serious: No
  Sender: FDA-Public Use
  Company Number: None

PATIENT
  Age: 71 Year
  Sex: Female
  Weight: 71.21 kg

DRUGS (1)
  1. DORZOLAMIDE/ TIMOLOL MALEATE EYE [Suspect]
     Active Substance: DORZOLAMIDE HYDROCHLORIDE\TIMOLOL MALEATE
     Indication: TOXIC ANTERIOR SEGMENT SYNDROME
     Dosage: ?          OTHER DOSE:1 DROP POST OP;OTHER ROUTE:TOPICAL EYE DROP?

REACTIONS (1)
  - Toxic anterior segment syndrome [None]

NARRATIVE: CASE EVENT DATE: 20190528
